FAERS Safety Report 13688778 (Version 1)
Quarter: 2017Q2

REPORT INFORMATION
  Report Type: Spontaneous
  Country: US (occurrence: US)
  Receive Date: 20170623
  Receipt Date: 20170623
  Transmission Date: 20170830
  Serious: No
  Sender: FDA-Public Use
  Company Number: None

PATIENT
  Age: 26 Year
  Sex: Female
  Weight: 60.75 kg

DRUGS (1)
  1. MIBELAS 24 FE [Suspect]
     Active Substance: ETHINYL ESTRADIOL\NORETHINDRONE ACETATE
     Indication: CONTRACEPTION
     Route: 048

REACTIONS (7)
  - Fatigue [None]
  - Rash [None]
  - Muscle spasms [None]
  - Abdominal pain upper [None]
  - Vulvovaginal dryness [None]
  - Product substitution issue [None]
  - Mood swings [None]

NARRATIVE: CASE EVENT DATE: 20170616
